FAERS Safety Report 24539925 (Version 1)
Quarter: 2024Q4

REPORT INFORMATION
  Report Type: Spontaneous
  Country: IE (occurrence: IE)
  Receive Date: 20241023
  Receipt Date: 20241023
  Transmission Date: 20250115
  Serious: Yes (Hospitalization)
  Sender: SANDOZ
  Company Number: IE-NOVPHSZ-PHHY2019IE076204

PATIENT
  Age: 73 Year
  Sex: Female
  Weight: 42.7 kg

DRUGS (7)
  1. MIRTAZAPINE [Suspect]
     Active Substance: MIRTAZAPINE
     Indication: Product used for unknown indication
     Dosage: 45 MG, UNK (MOST RECENT DOSE INCREASE TO 45MG NOCTE ON 03 JAN 2019)
     Route: 048
     Dates: start: 20180525, end: 20190301
  2. LITHIUM [Suspect]
     Active Substance: LITHIUM
     Indication: Product used for unknown indication
     Dosage: 400 MG, UNK
     Route: 048
     Dates: start: 20190213, end: 20190225
  3. LITHIUM [Suspect]
     Active Substance: LITHIUM
     Dosage: 600 MG, UNK (MOST RECENT DOSE INCREASE TO 600MG NOCTE ON 26 FEB 2019)
     Route: 048
     Dates: start: 20190226, end: 20190301
  4. QUETIAPINE FUMARATE [Suspect]
     Active Substance: QUETIAPINE FUMARATE
     Indication: Product used for unknown indication
     Dosage: 100 MG, UNK (IMMEDIATE RELEASE - MOST RECENT DOSE INCREASE TO 100MG NOCTE ON 25 JAN 2019)
     Route: 048
  5. VENLAFAXINE HYDROCHLORIDE [Suspect]
     Active Substance: VENLAFAXINE HYDROCHLORIDE
     Indication: Product used for unknown indication
     Dosage: 300 MG, UNK
     Route: 048
     Dates: start: 20180508, end: 20190301
  6. Anxicalm [Concomitant]
     Indication: Anxiety
     Dosage: 4 MG, UNK
     Route: 065
  7. PERINDOPRIL ARGININE [Concomitant]
     Active Substance: PERINDOPRIL ARGININE
     Indication: Hypertension
     Dosage: 5 MG, UNK
     Route: 065

REACTIONS (9)
  - Hyperhidrosis [Recovered/Resolved]
  - Tachycardia [Recovered/Resolved]
  - Muscle spasms [Recovered/Resolved]
  - Hypertonia [Recovered/Resolved]
  - Muscle rigidity [Recovered/Resolved]
  - Hyperreflexia [Recovered/Resolved]
  - Tremor [Recovered/Resolved]
  - Myoclonus [Recovered/Resolved]
  - Serotonin syndrome [Recovered/Resolved]

NARRATIVE: CASE EVENT DATE: 20190301
